FAERS Safety Report 17871364 (Version 1)
Quarter: 2020Q2

REPORT INFORMATION
  Report Type: Spontaneous
  Country: FR (occurrence: FR)
  Receive Date: 20200608
  Receipt Date: 20200608
  Transmission Date: 20200714
  Serious: Yes (Other)
  Sender: FDA-Public Use
  Company Number: FR-SA-2020SA144650

PATIENT

DRUGS (6)
  1. HYDROCHLOROTHIAZIDE. [Suspect]
     Active Substance: HYDROCHLOROTHIAZIDE
     Indication: WRONG PATIENT RECEIVED PRODUCT
     Dosage: 0.5 DF, QD
     Route: 048
     Dates: start: 20200513, end: 20200513
  2. APROVEL [Suspect]
     Active Substance: IRBESARTAN
     Indication: WRONG PATIENT RECEIVED PRODUCT
     Dosage: 1 DF, TOTAL
     Route: 048
     Dates: start: 20200513, end: 20200513
  3. TARDYFERON [Suspect]
     Active Substance: FERROUS SULFATE
     Indication: WRONG PATIENT RECEIVED PRODUCT
     Dosage: 1 DF, TOTAL
     Route: 048
     Dates: start: 20200513, end: 20200513
  4. NICARDIPINE [Suspect]
     Active Substance: NICARDIPINE
     Indication: WRONG PATIENT RECEIVED PRODUCT
     Dosage: 1 DF, TOTAL
     Route: 048
     Dates: start: 20200513, end: 20200513
  5. MEDIATENSYL [URAPIDIL] [Suspect]
     Active Substance: URAPIDIL
     Indication: WRONG PATIENT RECEIVED PRODUCT
     Dosage: 1 DF, TOTAL
     Route: 048
     Dates: start: 20200513, end: 20200513
  6. ESCITALOPRAM OXALATE. [Suspect]
     Active Substance: ESCITALOPRAM OXALATE
     Indication: WRONG PATIENT RECEIVED PRODUCT
     Dosage: 10 MG, TOTAL
     Route: 048
     Dates: start: 20200513, end: 20200513

REACTIONS (4)
  - Bradycardia [Recovered/Resolved]
  - Malaise [Recovered/Resolved]
  - Hypotension [Recovered/Resolved]
  - Wrong patient received product [Unknown]

NARRATIVE: CASE EVENT DATE: 20200513
